FAERS Safety Report 4971333-5 (Version None)
Quarter: 2006Q2

REPORT INFORMATION
  Report Type: 
  Country: None (occurrence: None)
  Receive Date: 20060406
  Receipt Date: 20060324
  Transmission Date: 20061013
  Serious: Yes (Hospitalization)
  Sender: FDA-Public Use
  Company Number: 2003JP007340

PATIENT
  Age: 52 Year
  Sex: Male

DRUGS (7)
  1. PROGRAF [Suspect]
     Indication: RENAL TRANSPLANT
     Route: 048
  2. AMLODIPINE BESYLATE [Concomitant]
  3. LOSARTAN POTASSIUM [Concomitant]
  4. URINORM (BENZBROMBROMARONE) [Concomitant]
  5. PHENOBAL (PHENOBARBITAL) [Concomitant]
  6. ETODOLAC [Concomitant]
  7. LASIX [Concomitant]

REACTIONS (6)
  - BLOOD BETA-D-GLUCAN INCREASED [None]
  - CYTOMEGALOVIRUS ANTIGEN [None]
  - LYMPHOMA [None]
  - OSTEITIS [None]
  - STAPHYLOCOCCAL BACTERAEMIA [None]
  - TOXIC EPIDERMAL NECROLYSIS [None]
